FAERS Safety Report 24107803 (Version 1)
Quarter: 2024Q3

REPORT INFORMATION
  Report Type: Other
  Country: MA (occurrence: MA)
  Receive Date: 20240718
  Receipt Date: 20240718
  Transmission Date: 20241017
  Serious: Yes (Hospitalization, Other)
  Sender: BIONPHARMA
  Company Number: MA-Bion-013451

PATIENT
  Age: 37 Year
  Sex: Female

DRUGS (2)
  1. METHIMAZOLE [Suspect]
     Active Substance: METHIMAZOLE
     Indication: Graves^ disease
     Dosage: 15 MG/DAY
  2. PROPRANOLOL [Concomitant]
     Active Substance: PROPRANOLOL HYDROCHLORIDE
     Indication: Graves^ disease

REACTIONS (2)
  - Septic shock [Recovered/Resolved]
  - Agranulocytosis [Recovered/Resolved]
